FAERS Safety Report 16398666 (Version 1)
Quarter: 2019Q2

REPORT INFORMATION
  Report Type: Spontaneous
  Country: US (occurrence: US)
  Receive Date: 20190605
  Receipt Date: 20190605
  Transmission Date: 20190711
  Serious: Yes (Life-Threatening)
  Sender: FDA-Public Use
  Company Number: None

PATIENT
  Age: 70 Year
  Sex: Female
  Weight: 55.8 kg

DRUGS (1)
  1. BABYGANICS SUNSCREEN 50SPF [Suspect]
     Active Substance: OCTINOXATE\OCTISALATE\ZINC OXIDE
     Indication: PROPHYLAXIS
     Route: 061
     Dates: start: 20190530, end: 20190531

REACTIONS (4)
  - Anaphylactic reaction [None]
  - Product administered to patient of inappropriate age [None]
  - Malaise [None]
  - Cough [None]

NARRATIVE: CASE EVENT DATE: 20190602
